FAERS Safety Report 16947220 (Version 1)
Quarter: 2019Q4

REPORT INFORMATION
  Report Type: Spontaneous
  Country: US (occurrence: US)
  Receive Date: 20191022
  Receipt Date: 20191022
  Transmission Date: 20200122
  Serious: No
  Sender: FDA-Public Use
  Company Number: US-BECTON DICKINSON-2018BDN00484

PATIENT
  Age: 23 Year
  Sex: Female
  Weight: 56.69 kg

DRUGS (3)
  1. MELATONIN [Concomitant]
     Active Substance: MELATONIN
     Dosage: UNK, 1X/DAY IN THE EVENING
  2. CHLORAPREP [Suspect]
     Active Substance: CHLORHEXIDINE GLUCONATE\ISOPROPYL ALCOHOL
     Indication: INFECTION PROPHYLAXIS
     Dosage: UNK
     Route: 061
     Dates: start: 20181214, end: 20181214
  3. LEXAPRO [Concomitant]
     Active Substance: ESCITALOPRAM OXALATE
     Dosage: UNK
     Dates: start: 2018

REACTIONS (3)
  - Miliaria [Recovering/Resolving]
  - Skin disorder [Recovering/Resolving]
  - Application site rash [Recovering/Resolving]

NARRATIVE: CASE EVENT DATE: 201812
